FAERS Safety Report 4846053-8 (Version None)
Quarter: 2005Q4

REPORT INFORMATION
  Report Type: 
  Country: None (occurrence: None)
  Receive Date: 20051130
  Receipt Date: 20051128
  Transmission Date: 20060501
  Serious: Yes (Death, Hospitalization)
  Sender: FDA-Public Use
  Company Number: US-2004-035172

PATIENT
  Age: 58 Year
  Sex: Female

DRUGS (1)
  1. MAGNEVIST [Suspect]
     Indication: NUCLEAR MAGNETIC RESONANCE IMAGING
     Dosage: 20 M1, 1 DOSE, INTRAVENOUS
     Route: 042
     Dates: start: 20041110, end: 20041110

REACTIONS (3)
  - CYANOSIS [None]
  - PULSE ABSENT [None]
  - RESPIRATORY ARREST [None]
